FAERS Safety Report 8326413-3 (Version None)
Quarter: 2012Q2

REPORT INFORMATION
  Report Type: 
  Country: None (occurrence: None)
  Receive Date: 20120501
  Receipt Date: 20120420
  Transmission Date: 20120825
  Serious: Yes (Death, Life-Threatening, Hospitalization)
  Sender: FDA-Public Use
  Company Number: US-MERCK-1202USA01488

PATIENT
  Age: 49 Year
  Sex: Male

DRUGS (3)
  1. FOSAMAX [Suspect]
     Indication: BONE LOSS
     Route: 048
     Dates: start: 20040101, end: 20080101
  2. AZULFIDINE [Concomitant]
     Route: 065
  3. LOMOTIL [Concomitant]
     Route: 065

REACTIONS (4)
  - OESOPHAGEAL CARCINOMA [None]
  - OESOPHAGEAL PAIN [None]
  - OESOPHAGEAL IRRITATION [None]
  - DYSPEPSIA [None]
